FAERS Safety Report 18964327 (Version 1)
Quarter: 2021Q1

REPORT INFORMATION
  Report Type: Spontaneous
  Country: US (occurrence: US)
  Receive Date: 20210303
  Receipt Date: 20210303
  Transmission Date: 20210420
  Serious: No
  Sender: FDA-Public Use
  Company Number: US-AMNEAL PHARMACEUTICALS-2020-AMRX-01448

PATIENT
  Age: 72 Year
  Sex: Male
  Weight: 97.98 kg

DRUGS (1)
  1. RYTARY [Suspect]
     Active Substance: CARBIDOPA\LEVODOPA
     Indication: PARKINSON^S DISEASE
     Dosage: 1 CAPSULES, 3 /DAY
     Route: 048
     Dates: start: 20200512, end: 20200513

REACTIONS (5)
  - Tremor [Not Recovered/Not Resolved]
  - Disturbance in attention [Recovering/Resolving]
  - Catatonia [Recovering/Resolving]
  - Somnolence [Recovering/Resolving]
  - Product dispensing error [Unknown]

NARRATIVE: CASE EVENT DATE: 20200512
